FAERS Safety Report 11857757 (Version 1)
Quarter: 2015Q4

REPORT INFORMATION
  Report Type: Spontaneous
  Country: US (occurrence: None)
  Receive Date: 20151221
  Receipt Date: 20151221
  Transmission Date: 20160305
  Serious: Yes (Other)
  Sender: FDA-Public Use
  Company Number: None

PATIENT
  Age: 52 Year
  Sex: Male
  Weight: 73.48 kg

DRUGS (15)
  1. PRO-CAL CALCIUIM [Concomitant]
  2. VITAMIN B COMPLEX [Concomitant]
     Active Substance: CYANOCOBALAMIN\DEXPANTHENOL\NIACINAMIDE\PYRIDOXINE HYDROCHLORIDE\RIBOFLAVIN 5^-PHOSPHATE SODIUM\THIAMINE HYDROCHLORIDE\VITAMIN B COMPLEX
  3. NAPROXEN. [Concomitant]
     Active Substance: NAPROXEN
  4. AMPHETA [Concomitant]
  5. BIO-35 MULTI-VITAMINS [Concomitant]
  6. MAGNESIUM SUPPLEMENT [Concomitant]
  7. BELSOMRA [Suspect]
     Active Substance: SUVOREXANT
     Indication: SLEEP DISORDER
     Dosage: AT BEDTIME, TAKEN BY MOUTH
     Dates: start: 20151102, end: 20151215
  8. OXYCOD/ACETAMIN [Concomitant]
  9. PRO-BIOTIC [Concomitant]
  10. BELSOMRA [Concomitant]
     Active Substance: SUVOREXANT
  11. TOPIRAMATE. [Concomitant]
     Active Substance: TOPIRAMATE
  12. MODAFINIL. [Concomitant]
     Active Substance: MODAFINIL
  13. PHOSPHORUS SUPPLEMENT [Concomitant]
     Active Substance: PHOSPHORUS
  14. ALEVE [Concomitant]
     Active Substance: NAPROXEN SODIUM
  15. ESCITALOPRAM [Concomitant]
     Active Substance: ESCITALOPRAM OXALATE

REACTIONS (2)
  - Heart rate irregular [None]
  - Insomnia [None]

NARRATIVE: CASE EVENT DATE: 20151214
